FAERS Safety Report 4405239-7 (Version None)
Quarter: 2004Q3

REPORT INFORMATION
  Report Type: 
  Country: None (occurrence: None)
  Receive Date: 20040722
  Receipt Date: 20040722
  Transmission Date: 20050211
  Serious: Yes (Hospitalization)
  Sender: FDA-Public Use
  Company Number: None

PATIENT
  Age: 53 Year
  Sex: Male
  Weight: 79.8 kg

DRUGS (3)
  1. NAPROSYN [Suspect]
  2. TRAMADOL HCL [Concomitant]
  3. CYCLOBEYEAPRINE HCL [Concomitant]

REACTIONS (1)
  - EYE SWELLING [None]
